FAERS Safety Report 6045619-X (Version None)
Quarter: 2009Q1

REPORT INFORMATION
  Report Type: 
  Country: None (occurrence: None)
  Receive Date: 20090121
  Receipt Date: 20090115
  Transmission Date: 20090719
  Serious: Yes (Death)
  Sender: FDA-Public Use
  Company Number: CA-MERCK-0806CAN00011

PATIENT
  Age: 71 Year
  Sex: Male
  Weight: 93 kg

DRUGS (2)
  1. COZAAR [Suspect]
     Indication: ESSENTIAL HYPERTENSION
     Route: 048
     Dates: start: 20080318, end: 20081218
  2. RAMIPRIL [Concomitant]
     Route: 048
     Dates: start: 20080218, end: 20080318

REACTIONS (2)
  - METASTASES TO BLADDER [None]
  - PROSTATE CANCER METASTATIC [None]
